FAERS Safety Report 8801483 (Version 2)
Quarter: 2015Q3

REPORT INFORMATION
  Report Type: Report from Study
  Country: US (occurrence: US)
  Receive Date: 20120921
  Receipt Date: 20150729
  Transmission Date: 20151125
  Serious: Yes (Death)
  Sender: FDA-Public Use
  Company Number: US-ROCHE-1124773

PATIENT
  Age: 56 Year
  Sex: Female
  Weight: 63.5 kg

DRUGS (11)
  1. AVASTIN [Suspect]
     Active Substance: BEVACIZUMAB
     Route: 042
  2. ZOMETA [Concomitant]
     Active Substance: ZOLEDRONIC ACID
     Route: 042
  3. TYLENOL #1 (UNITED STATES) [Concomitant]
     Route: 048
  4. ABRAXANE [Concomitant]
     Active Substance: PACLITAXEL
     Route: 042
  5. TYLENOL #1 (UNITED STATES) [Concomitant]
     Route: 048
  6. HEPARIN [Concomitant]
     Active Substance: HEPARIN SODIUM
     Route: 042
  7. NORCO [Concomitant]
     Active Substance: ACETAMINOPHEN\HYDROCODONE BITARTRATE
     Route: 048
  8. DECADRON [Concomitant]
     Active Substance: DEXAMETHASONE
     Route: 042
  9. ZOFRAN [Concomitant]
     Active Substance: ONDANSETRON HYDROCHLORIDE
     Route: 048
  10. ATIVAN ORAL [Concomitant]
     Route: 048
  11. AVASTIN [Suspect]
     Active Substance: BEVACIZUMAB
     Indication: BREAST CANCER FEMALE
     Route: 042
     Dates: start: 20080422

REACTIONS (3)
  - Toothache [Unknown]
  - Vision blurred [Recovered/Resolved]
  - Death [Fatal]

NARRATIVE: CASE EVENT DATE: 200812
